FAERS Safety Report 26094020 (Version 1)
Quarter: 2025Q4

REPORT INFORMATION
  Report Type: Spontaneous
  Country: ID (occurrence: ID)
  Receive Date: 20251126
  Receipt Date: 20251126
  Transmission Date: 20260118
  Serious: Yes (Hospitalization)
  Sender: ROCHE
  Company Number: ID-ROCHE-10000423820

PATIENT
  Age: 44 Year
  Sex: Male

DRUGS (4)
  1. MYCOPHENOLATE MOFETIL [Suspect]
     Active Substance: MYCOPHENOLATE MOFETIL
     Indication: Prophylaxis against transplant rejection
     Route: 048
  2. TACROLIMUS [Suspect]
     Active Substance: TACROLIMUS
     Indication: Prophylaxis against transplant rejection
     Route: 048
  3. AMPHOTERICIN B [Concomitant]
     Active Substance: AMPHOTERICIN B
  4. ITRACONAZOLE [Concomitant]
     Active Substance: ITRACONAZOLE
     Route: 048

REACTIONS (3)
  - Histoplasmosis disseminated [Recovered/Resolved]
  - Histoplasmosis cutaneous [Recovered/Resolved]
  - Rib fracture [Recovered/Resolved]
